FAERS Safety Report 22810402 (Version 3)
Quarter: 2023Q4

REPORT INFORMATION
  Report Type: Report from Study
  Country: AU (occurrence: AU)
  Receive Date: 20230810
  Receipt Date: 20231215
  Transmission Date: 20240109
  Serious: Yes (Other)
  Sender: FDA-Public Use
  Company Number: AU-002147023-NVSC2023AU052551

PATIENT
  Sex: Female

DRUGS (2)
  1. GILENYA [Suspect]
     Active Substance: FINGOLIMOD HYDROCHLORIDE
     Indication: Relapsing-remitting multiple sclerosis
     Dosage: 0.5 MG, QD
     Route: 048
     Dates: start: 20230306
  2. VITAMINS [Concomitant]
     Active Substance: VITAMINS
     Indication: Product used for unknown indication
     Dosage: UNK
     Route: 065

REACTIONS (10)
  - Renal impairment [Recovering/Resolving]
  - Abdominal discomfort [Unknown]
  - Dry mouth [Unknown]
  - Dysgeusia [Unknown]
  - Burning sensation [Unknown]
  - Vitamin B6 increased [Recovering/Resolving]
  - Brain fog [Recovered/Resolved]
  - Liver function test abnormal [Recovering/Resolving]
  - Fatigue [Recovered/Resolved]
  - Extra dose administered [Unknown]
